FAERS Safety Report 12670645 (Version 2)
Quarter: 2016Q3

REPORT INFORMATION
  Report Type: Other
  Country: BR (occurrence: BR)
  Receive Date: 20160822
  Receipt Date: 20160906
  Transmission Date: 20161109
  Serious: Yes (Hospitalization, Other)
  Sender: FDA-Public Use
  Company Number: BR-SHIRE-BR201610633

PATIENT
  Age: 19 Year
  Sex: Female
  Weight: 59.4 kg

DRUGS (1)
  1. ELAPRASE [Suspect]
     Active Substance: IDURSULFASE
     Indication: MUCOPOLYSACCHARIDOSIS II
     Dosage: 18 MG, UNKNOWN
     Route: 041

REACTIONS (11)
  - Pyrexia [Unknown]
  - Abasia [Not Recovered/Not Resolved]
  - Pneumonia [Unknown]
  - Tracheal obstruction [Not Recovered/Not Resolved]
  - Seizure [Not Recovered/Not Resolved]
  - Secretion discharge [Unknown]
  - Catarrh [Not Recovered/Not Resolved]
  - Drug ineffective [Not Recovered/Not Resolved]
  - Respiratory disorder [Not Recovered/Not Resolved]
  - Condition aggravated [Not Recovered/Not Resolved]
  - Flatulence [Not Recovered/Not Resolved]

NARRATIVE: CASE EVENT DATE: 2013
